FAERS Safety Report 8288921-3 (Version None)
Quarter: 2012Q2

REPORT INFORMATION
  Report Type: 
  Country: None (occurrence: None)
  Receive Date: 20120412
  Receipt Date: 20080331
  Transmission Date: 20120825
  Serious: Yes (Other)
  Sender: FDA-Public Use
  Company Number: GGEL20110200068

PATIENT
  Age: 34 Year
  Sex: Male

DRUGS (4)
  1. ZONISAMIDE [Suspect]
     Indication: CONVULSION
     Dosage: 50 MILLIGRAM, 1 IN D, PER ORAL
     Route: 048
  2. CLONZEPAM (CLONZEPAM) (CLONZEPAM) [Concomitant]
  3. OXCARBAZEPINE [Concomitant]
  4. DICALPROEX SODIUM (DICALPROEX SODIUM) (DICALPROEX SODIUM) [Concomitant]

REACTIONS (3)
  - URINARY TRACT INFECTION [None]
  - NASAL DISORDER [None]
  - SCAB [None]
